FAERS Safety Report 19889363 (Version 1)
Quarter: 2021Q3

REPORT INFORMATION
  Report Type: Report from Study
  Country: AR (occurrence: AR)
  Receive Date: 20210927
  Receipt Date: 20210927
  Transmission Date: 20211014
  Serious: Yes (Death, Life-Threatening, Other)
  Sender: FDA-Public Use
  Company Number: AR-BRISTOL-MYERS SQUIBB COMPANY-BMS-2021-097417

PATIENT
  Age: 87 Year
  Sex: Male

DRUGS (2)
  1. IPILIMUMAB [Suspect]
     Active Substance: IPILIMUMAB
     Indication: RENAL CANCER
     Dosage: UNK UNK, QMO
     Route: 042
     Dates: start: 20210802, end: 20210905
  2. OPDIVO [Suspect]
     Active Substance: NIVOLUMAB
     Indication: RENAL CANCER
     Dosage: UNK UNK, QMO
     Route: 042
     Dates: start: 20210802, end: 20210905

REACTIONS (3)
  - Post procedural complication [Fatal]
  - Diarrhoea [Unknown]
  - Gastrointestinal disorder [Unknown]

NARRATIVE: CASE EVENT DATE: 20210830
